FAERS Safety Report 4789438-0 (Version None)
Quarter: 2005Q4

REPORT INFORMATION
  Report Type: 
  Country: None (occurrence: None)
  Receive Date: 20051004
  Receipt Date: 20051004
  Transmission Date: 20060501
  Serious: Yes (Hospitalization)
  Sender: FDA-Public Use
  Company Number: None

PATIENT
  Sex: Male

DRUGS (16)
  1. HEPARIN [Suspect]
     Indication: THROMBOSIS PROPHYLAXIS
     Dosage: 7500 UNITS SQ Q8HRS
     Route: 058
  2. INSULIN [Concomitant]
  3. FENTANYL [Concomitant]
  4. ATIVAN [Concomitant]
  5. ALBUTEROL [Concomitant]
  6. ATROVENT [Concomitant]
  7. METOPROLOL [Concomitant]
  8. DEXAMETHASONE [Concomitant]
  9. PROPOFOL [Concomitant]
  10. VANCOMYCIN [Concomitant]
  11. FUROSEMIDE [Concomitant]
  12. LANSOPRAZOLE [Concomitant]
  13. MEROPENEM [Concomitant]
  14. METRONIDAZOLE [Concomitant]
  15. ASPIRIN [Concomitant]
  16. MORPHINE [Concomitant]

REACTIONS (1)
  - HEPARIN-INDUCED THROMBOCYTOPENIA [None]
